FAERS Safety Report 5724393-8 (Version None)
Quarter: 2008Q2

REPORT INFORMATION
  Report Type: 
  Country: None (occurrence: None)
  Receive Date: 20080430
  Receipt Date: 20080421
  Transmission Date: 20081010
  Serious: Yes (Hospitalization)
  Sender: FDA-Public Use
  Company Number: SE-PFIZER INC-2008035463

PATIENT
  Sex: Female

DRUGS (2)
  1. PREDNISOLONE [Suspect]
     Indication: NEPHROSCLEROSIS
     Route: 048
     Dates: start: 20070101, end: 20070101
  2. ENALAPRIL [Concomitant]
     Route: 048

REACTIONS (1)
  - TOOTH DISCOLOURATION [None]
